FAERS Safety Report 24800182 (Version 1)
Quarter: 2025Q1

REPORT INFORMATION
  Report Type: Spontaneous
  Country: US (occurrence: None)
  Receive Date: 20250101
  Receipt Date: 20250101
  Transmission Date: 20250408
  Serious: Yes (Hospitalization)
  Sender: FDA-CTU
  Company Number: None

PATIENT
  Age: 69 Year
  Sex: Male
  Weight: 101.7 kg

DRUGS (1)
  1. MOUNJARO [Suspect]
     Active Substance: TIRZEPATIDE
     Indication: Blood glucose abnormal
     Route: 030
     Dates: start: 20241116, end: 20241221

REACTIONS (6)
  - Diarrhoea [None]
  - Abdominal pain upper [None]
  - Asthenia [None]
  - Hypotension [None]
  - Myalgia [None]
  - Weight decreased [None]

NARRATIVE: CASE EVENT DATE: 20241223
